FAERS Safety Report 20881076 (Version 1)
Quarter: 2022Q2

REPORT INFORMATION
  Report Type: Report from Study
  Country: US (occurrence: US)
  Receive Date: 20220526
  Receipt Date: 20220526
  Transmission Date: 20220721
  Serious: Yes (Death, Hospitalization)
  Sender: FDA-Public Use
  Company Number: US-ABBVIE-21K-163-4190708-00

PATIENT
  Sex: Female

DRUGS (1)
  1. IMBRUVICA [Suspect]
     Active Substance: IBRUTINIB
     Indication: Non-Hodgkin^s lymphoma
     Route: 048
     Dates: start: 20211123, end: 202112

REACTIONS (7)
  - Death [Fatal]
  - Hospitalisation [Unknown]
  - Off label use [Unknown]
  - Pruritus [Unknown]
  - Anorectal discomfort [Unknown]
  - Anal incontinence [Unknown]
  - Rash papular [Unknown]

NARRATIVE: CASE EVENT DATE: 20210101
